FAERS Safety Report 25150352 (Version 1)
Quarter: 2025Q2

REPORT INFORMATION
  Report Type: Spontaneous
  Country: US (occurrence: None)
  Receive Date: 20250402
  Receipt Date: 20250402
  Transmission Date: 20250716
  Serious: Yes (Death)
  Sender: FDA-CTU
  Company Number: None

PATIENT
  Age: 61 Year
  Sex: Female
  Weight: 86.2 kg

DRUGS (1)
  1. PRALUENT [Suspect]
     Active Substance: ALIROCUMAB
     Indication: Hypercholesterolaemia
     Dosage: 150 MG EVERY 2 WEEKS SUBCUTANEOUS?
     Route: 058
     Dates: start: 20230131, end: 20250319

REACTIONS (1)
  - Death [None]

NARRATIVE: CASE EVENT DATE: 20250319
